FAERS Safety Report 5337352-4 (Version None)
Quarter: 2007Q2

REPORT INFORMATION
  Report Type: 
  Country: None (occurrence: None)
  Receive Date: 20070529
  Receipt Date: 20070517
  Transmission Date: 20071010
  Serious: Yes (Other)
  Sender: FDA-Public Use
  Company Number: ZA-SHR-ZA-2007-017639

PATIENT
  Age: 37 Year
  Sex: Female

DRUGS (1)
  1. MIRENA [Suspect]
     Indication: CONTRACEPTION
     Dosage: 20 A?G/DAY, CONT
     Route: 015
     Dates: end: 20061211

REACTIONS (3)
  - POLYHYDRAMNIOS [None]
  - PREGNANCY WITH CONTRACEPTIVE DEVICE [None]
  - PREMATURE LABOUR [None]
